FAERS Safety Report 8716152 (Version 4)
Quarter: 2014Q2

REPORT INFORMATION
  Report Type: Spontaneous
  Country: US (occurrence: US)
  Receive Date: 20120809
  Receipt Date: 20140418
  Transmission Date: 20141212
  Serious: Yes (Hospitalization)
  Sender: FDA-Public Use
  Company Number: US-UCBSA-063052

PATIENT
  Sex: Male
  Weight: 158.7 kg

DRUGS (1)
  1. VIMPAT [Suspect]
     Indication: CONVULSION
     Dosage: EXPIRY DATE: 30/JUN/2016

REACTIONS (1)
  - Arthritis [Not Recovered/Not Resolved]
